FAERS Safety Report 10908131 (Version 1)
Quarter: 2015Q1

REPORT INFORMATION
  Report Type: Spontaneous
  Country: US (occurrence: US)
  Receive Date: 20150312
  Receipt Date: 20150312
  Transmission Date: 20150721
  Serious: No
  Sender: FDA-Public Use
  Company Number: US-INCYTE CORPORATION-2015IN000523

PATIENT
  Age: 65 Year
  Sex: Male

DRUGS (9)
  1. ASPIRIN. [Concomitant]
     Active Substance: ASPIRIN
  2. COLCRYS [Concomitant]
     Active Substance: COLCHICINE
  3. ACYCLOVIR                          /00587301/ [Concomitant]
     Active Substance: ACYCLOVIR
  4. HYDREA [Suspect]
     Active Substance: HYDROXYUREA
     Dosage: BID
  5. LOVASTATIN. [Concomitant]
     Active Substance: LOVASTATIN
  6. JAKAFI [Suspect]
     Active Substance: RUXOLITINIB
     Dosage: 10 MG IN MORNING AND 20 MG NIGHTLY
     Route: 048
  7. PRILOSEC [Concomitant]
     Active Substance: OMEPRAZOLE MAGNESIUM
  8. JAKAFI [Suspect]
     Active Substance: RUXOLITINIB
     Indication: POLYCYTHAEMIA VERA
     Dosage: 10 MG, BID
     Dates: start: 20150109
  9. HYDREA [Suspect]
     Active Substance: HYDROXYUREA
     Dosage: QD
     Route: 048

REACTIONS (2)
  - Platelet count increased [Recovering/Resolving]
  - Blood potassium increased [Recovering/Resolving]

NARRATIVE: CASE EVENT DATE: 20150121
